FAERS Safety Report 4316088-2 (Version None)
Quarter: 2004Q1

REPORT INFORMATION
  Report Type: 
  Country: None (occurrence: None)
  Receive Date: 20040312
  Receipt Date: 20020610
  Transmission Date: 20041129
  Serious: Yes (Hospitalization)
  Sender: FDA-Public Use
  Company Number: US-BRISTOL-MYERS SQUIBB COMPANY-11906856

PATIENT
  Age: 54 Year
  Sex: Male

DRUGS (9)
  1. BMS224818 [Concomitant]
     Dosage: -EIGHTH COURSE OF TREATMENT.
     Route: 042
     Dates: start: 20020312
  2. CELLCEPT [Suspect]
     Dates: start: 20020312
  3. PREDNISONE [Suspect]
     Dates: start: 20020312
  4. ZANTAC [Concomitant]
     Route: 048
  5. LIPITOR [Concomitant]
     Route: 048
  6. SEPTRA [Concomitant]
     Dosage: 400/80 MILIGRAMS
  7. ASPIRIN [Concomitant]
     Route: 048
  8. CARVEDILOL [Concomitant]
     Route: 048
  9. MULTI-VITAMIN [Concomitant]

REACTIONS (6)
  - BLISTER [None]
  - CELLULITIS [None]
  - DIABETIC FOOT [None]
  - SKIN GRAFT [None]
  - TOE AMPUTATION [None]
  - WOUND INFECTION [None]
